FAERS Safety Report 7374770-7 (Version None)
Quarter: 2011Q1

REPORT INFORMATION
  Report Type: 
  Country: None (occurrence: None)
  Receive Date: 20110325
  Receipt Date: 20101029
  Transmission Date: 20110831
  Serious: No
  Sender: FDA-Public Use
  Company Number: US-MYLANLABS-2010S1019742

PATIENT
  Age: 53 Year
  Sex: Female
  Weight: 137.44 kg

DRUGS (2)
  1. CLONIDINE [Concomitant]
  2. FENTANYL-100 [Suspect]
     Indication: BACK PAIN
     Dosage: CHANGED Q72H
     Route: 062
     Dates: start: 20100101

REACTIONS (3)
  - PANIC ATTACK [None]
  - TREMOR [None]
  - DRUG WITHDRAWAL SYNDROME [None]
